FAERS Safety Report 4459194-4 (Version None)
Quarter: 2004Q3

REPORT INFORMATION
  Report Type: 
  Country: None (occurrence: None)
  Receive Date: 20040927
  Receipt Date: 20040914
  Transmission Date: 20050211
  Serious: Yes (Hospitalization)
  Sender: FDA-Public Use
  Company Number: FR-BRISTOL-MYERS SQUIBB COMPANY-12702601

PATIENT
  Age: 81 Year
  Sex: Male

DRUGS (14)
  1. MUCOMYST TABS 200 MG [Suspect]
     Indication: BRONCHITIS
     Route: 048
     Dates: start: 20040129, end: 20040216
  2. ALLOPURINOL [Suspect]
     Route: 048
     Dates: end: 20040224
  3. PULMICORT [Suspect]
     Indication: BRONCHITIS
     Dates: start: 20040129, end: 20040216
  4. CELESTENE [Suspect]
     Indication: BRONCHITIS
  5. LASIX [Suspect]
     Indication: MYOCARDIAL ISCHAEMIA
     Dates: end: 20040224
  6. PNEUMOREL [Suspect]
     Indication: BRONCHITIS
     Dates: start: 20040206, end: 20040220
  7. NAXY [Suspect]
     Indication: BRONCHITIS
     Dates: start: 20040206, end: 20040214
  8. BRONCHODUAL [Concomitant]
     Dates: end: 20040224
  9. ZOCOR [Concomitant]
     Dates: end: 20040224
  10. NEO-MERCAZOLE TAB [Concomitant]
  11. DILTIAZEM HYDROCHLORIDE [Concomitant]
  12. NITRIDERM [Concomitant]
     Route: 061
  13. LEVOTHYROX [Concomitant]
  14. ASPIRIN [Concomitant]

REACTIONS (2)
  - DERMATITIS EXFOLIATIVE [None]
  - RENAL FAILURE [None]
